FAERS Safety Report 9870878 (Version 1)
Quarter: 2014Q1

REPORT INFORMATION
  Report Type: Spontaneous
  Country: US (occurrence: None)
  Receive Date: 20140203
  Receipt Date: 20140203
  Transmission Date: 20141002
  Serious: Yes (Death)
  Sender: FDA-Public Use
  Company Number: 1401-0185

PATIENT
  Age: 88 Year
  Sex: 0

DRUGS (1)
  1. EYELEA (AFLIBERCEPT) (INJECTION) (AFLIBERCEPT) [Suspect]
     Dates: start: 20120911, end: 20131003

REACTIONS (1)
  - Death [None]
